FAERS Safety Report 8802606 (Version 1)
Quarter: 2012Q4

REPORT INFORMATION
  Report Type: 
  Country: US (occurrence: US)
  Receive Date: 20120921
  Receipt Date: 20120921
  Transmission Date: 20130627
  Serious: Yes (Hospitalization)
  Sender: FDA-Public Use
  Company Number: US-ROXANE LABORATORIES, INC.-2012-RO-01873RO

PATIENT
  Age: 33 Year
  Sex: Male

DRUGS (1)
  1. NAPROXEN [Suspect]
     Indication: MIGRAINE

REACTIONS (4)
  - Acute myocardial infarction [Unknown]
  - Kounis syndrome [Unknown]
  - Rash maculo-papular [Recovered/Resolved]
  - Dizziness [Unknown]
